FAERS Safety Report 5482490-9 (Version None)
Quarter: 2007Q4

REPORT INFORMATION
  Report Type: 
  Country: None (occurrence: None)
  Receive Date: 20071011
  Receipt Date: 20070723
  Transmission Date: 20080405
  Serious: No
  Sender: FDA-Public Use
  Company Number: A0648694A

PATIENT
  Age: 53 Year
  Sex: Female
  Weight: 53.6 kg

DRUGS (2)
  1. TYKERB [Suspect]
     Indication: BREAST CANCER
     Dosage: 5TAB PER DAY
     Route: 048
     Dates: start: 20070413
  2. XELODA [Concomitant]

REACTIONS (3)
  - DIARRHOEA [None]
  - ERYTHEMA [None]
  - OEDEMA PERIPHERAL [None]
